FAERS Safety Report 10195495 (Version 2)
Quarter: 2014Q2

REPORT INFORMATION
  Report Type: Spontaneous
  Country: CN (occurrence: CN)
  Receive Date: 20140526
  Receipt Date: 20140619
  Transmission Date: 20141212
  Serious: Yes (Other)
  Sender: FDA-Public Use
  Company Number: CN-MERCK-1405CHN011845

PATIENT
  Age: 70 Year
  Sex: Male
  Weight: 45 kg

DRUGS (3)
  1. IMIPENEM (+) CILASTATIN SODIUM [Suspect]
     Indication: LOBAR PNEUMONIA
     Dosage: 1.0G (DISSOLVED IN 100 ML NORMAL SALINE), BID
     Route: 042
     Dates: start: 200806, end: 200806
  2. PENICILLIN (UNSPECIFIED) [Concomitant]
     Indication: INFECTION
     Dosage: UNK
     Dates: end: 200806
  3. PIPERACILLIN SODIUM [Concomitant]
     Indication: SUPPORTIVE CARE
     Dosage: UNK
     Dates: end: 200806

REACTIONS (1)
  - Epilepsy [Recovered/Resolved]
